FAERS Safety Report 6671269-8 (Version None)
Quarter: 2010Q2

REPORT INFORMATION
  Report Type: 
  Country: None (occurrence: None)
  Receive Date: 20100406
  Receipt Date: 20100406
  Transmission Date: 20101027
  Serious: Yes (Life-Threatening, Hospitalization, Disabling)
  Sender: FDA-Public Use
  Company Number: None

PATIENT
  Sex: Male
  Weight: 103 kg

DRUGS (1)
  1. ETOMIDATE [Suspect]
     Dosage: 6/26/08 30MG X 1 SUBQ
     Route: 058

REACTIONS (2)
  - COMA [None]
  - RENAL FAILURE [None]
